FAERS Safety Report 9585674 (Version 2)
Quarter: 2013Q4

REPORT INFORMATION
  Report Type: Spontaneous
  Country: US (occurrence: US)
  Receive Date: 20131003
  Receipt Date: 20131003
  Transmission Date: 20140711
  Serious: Yes (Hospitalization, Other)
  Sender: FDA-Public Use
  Company Number: US-ROCHE-1283449

PATIENT
  Sex: Female
  Weight: 96.7 kg

DRUGS (1)
  1. XOLAIR [Suspect]
     Indication: ASTHMA
     Route: 058
     Dates: start: 20080403, end: 20130925

REACTIONS (6)
  - Dyspnoea [Recovering/Resolving]
  - Lung infiltration [Unknown]
  - Pyrexia [Unknown]
  - Injection site pain [Unknown]
  - Pain [Unknown]
  - Drug ineffective [Unknown]
